FAERS Safety Report 4655947-8 (Version None)
Quarter: 2005Q2

REPORT INFORMATION
  Report Type: 
  Country: None (occurrence: None)
  Receive Date: 20050506
  Receipt Date: 20050506
  Transmission Date: 20051028
  Serious: Yes (Hospitalization)
  Sender: FDA-Public Use
  Company Number: None

PATIENT
  Sex: Female
  Weight: 106.1 kg

DRUGS (2)
  1. CYTARABINE [Suspect]
     Dosage: 100 MG/M2 /DAY BY CIV ON DAYS 1-7
     Route: 042
     Dates: start: 20050405, end: 20050412
  2. DAUNORUBICIN HCL [Suspect]
     Dosage: 60 MG/M2 /DAY BY IVP ON DAYS 1-3
     Route: 042
     Dates: end: 20050407

REACTIONS (4)
  - BLOOD PRESSURE DECREASED [None]
  - DYSPNOEA [None]
  - LUNG INFILTRATION [None]
  - PO2 DECREASED [None]
